FAERS Safety Report 9764841 (Version 1)
Quarter: 2013Q4

REPORT INFORMATION
  Report Type: Spontaneous
  Country: US (occurrence: US)
  Receive Date: 20131217
  Receipt Date: 20131217
  Transmission Date: 20140711
  Serious: No
  Sender: FDA-Public Use
  Company Number: US-BIOGENIDEC-2013BI111426

PATIENT
  Sex: Female

DRUGS (10)
  1. VITAMIN D3 [Concomitant]
  2. POTASSIUM [Concomitant]
  3. TECFIDERA [Suspect]
     Indication: MULTIPLE SCLEROSIS
     Route: 048
     Dates: start: 20131108
  4. TECFIDERA [Suspect]
     Indication: MULTIPLE SCLEROSIS
     Route: 048
  5. TECFIDERA [Suspect]
     Indication: MULTIPLE SCLEROSIS
     Route: 048
  6. CYMBALTA [Concomitant]
  7. COUMADIN [Concomitant]
  8. TRAMADOL [Concomitant]
  9. BACLOFEN [Concomitant]
  10. NORCO [Concomitant]

REACTIONS (3)
  - Arthralgia [Unknown]
  - Diarrhoea [Unknown]
  - Abdominal pain upper [Unknown]
